FAERS Safety Report 18962827 (Version 1)
Quarter: 2021Q1

REPORT INFORMATION
  Report Type: Spontaneous
  Country: US (occurrence: US)
  Receive Date: 20210302
  Receipt Date: 20210302
  Transmission Date: 20210420
  Serious: No
  Sender: FDA-Public Use
  Company Number: None

PATIENT
  Age: 62 Year
  Sex: Female
  Weight: 56.4 kg

DRUGS (2)
  1. TISSUEBLUE [Suspect]
     Active Substance: BRILLIANT BLUE G
     Indication: VITRECTOMY
     Route: 047
     Dates: start: 20210203
  2. MEMBRANEBLUE [Suspect]
     Active Substance: TRYPAN BLUE
     Indication: VITRECTOMY
     Route: 047
     Dates: start: 20210203

REACTIONS (2)
  - Eye disorder [None]
  - Blindness [None]

NARRATIVE: CASE EVENT DATE: 20210223
